FAERS Safety Report 9338954 (Version 1)
Quarter: 2013Q2

REPORT INFORMATION
  Report Type: Spontaneous
  Country: US (occurrence: None)
  Receive Date: 20130606
  Receipt Date: 20130606
  Transmission Date: 20140414
  Serious: Yes (Hospitalization, Other)
  Sender: FDA-Public Use
  Company Number: None

PATIENT
  Sex: Female
  Weight: 85.73 kg

DRUGS (3)
  1. SEROQUEL [Suspect]
  2. VICODIN [Suspect]
  3. ABILIFY [Suspect]

REACTIONS (5)
  - Drug effect increased [None]
  - Ill-defined disorder [None]
  - Abnormal behaviour [None]
  - Thinking abnormal [None]
  - Nervous system disorder [None]
